FAERS Safety Report 4928845-X (Version None)
Quarter: 2006Q1

REPORT INFORMATION
  Report Type: 
  Country: None (occurrence: None)
  Receive Date: 20060223
  Receipt Date: 20060214
  Transmission Date: 20060701
  Serious: Yes (Hospitalization, Other)
  Sender: FDA-Public Use
  Company Number: 2006022871

PATIENT
  Sex: Male
  Weight: 99.7913 kg

DRUGS (11)
  1. NEURONTIN [Suspect]
     Indication: PAIN
     Dates: start: 20040301
  2. VIAGRA [Suspect]
     Indication: ERECTILE DYSFUNCTION
  3. PLAVIX [Concomitant]
  4. LISINOPRIL [Concomitant]
  5. HYDROCHLOROTHIAZIDE [Concomitant]
  6. COREG [Concomitant]
  7. INSULIN [Concomitant]
  8. NORVASC [Concomitant]
  9. LIPITOR [Concomitant]
  10. LEVITRA [Concomitant]
  11. NITROGLYCERIN [Concomitant]

REACTIONS (3)
  - CHEST PAIN [None]
  - CORONARY ARTERY OCCLUSION [None]
  - DRUG INEFFECTIVE [None]
